FAERS Safety Report 4381506-0 (Version None)
Quarter: 2004Q2

REPORT INFORMATION
  Report Type: 
  Country: None (occurrence: None)
  Receive Date: 20040616
  Receipt Date: 20040603
  Transmission Date: 20050107
  Serious: Yes (Hospitalization)
  Sender: FDA-Public Use
  Company Number: A03200401801

PATIENT
  Age: 0 Day
  Sex: Male
  Weight: 0.9 kg

DRUGS (1)
  1. PLAVIX [Suspect]
     Dosage: TRANSPLACENTAL
     Route: 064

REACTIONS (3)
  - BONE MARROW DEPRESSION [None]
  - DRUG EXPOSURE DURING PREGNANCY [None]
  - SMALL FOR DATES BABY [None]
